FAERS Safety Report 5349308-6 (Version None)
Quarter: 2007Q2

REPORT INFORMATION
  Report Type: 
  Country: None (occurrence: None)
  Receive Date: 20070607
  Receipt Date: 20070530
  Transmission Date: 20071010
  Serious: Yes (Other)
  Sender: FDA-Public Use
  Company Number: B0473113A

PATIENT
  Sex: Male

DRUGS (2)
  1. SEROXAT [Suspect]
     Indication: SOCIAL PHOBIA
     Route: 048
  2. ALCOHOL [Concomitant]
     Route: 065

REACTIONS (2)
  - AGGRESSION [None]
  - ALCOHOL INTERACTION [None]
